FAERS Safety Report 4621720-X (Version None)
Quarter: 2005Q1

REPORT INFORMATION
  Report Type: 
  Country: None (occurrence: None)
  Receive Date: 20050329
  Receipt Date: 20050321
  Transmission Date: 20050727
  Serious: Yes (Hospitalization, Other)
  Sender: FDA-Public Use
  Company Number: PHEH2005US03445

PATIENT
  Age: 79 Year
  Sex: Male

DRUGS (5)
  1. EXELON [Suspect]
     Indication: MEMORY IMPAIRMENT
     Dosage: 1.5 MG, BID
     Route: 048
     Dates: start: 20030101
  2. EXELON [Suspect]
     Dosage: 3 MG, BID
     Route: 048
  3. EXELON [Suspect]
     Dosage: 6 MG, BID
     Route: 048
  4. EXELON [Suspect]
     Dosage: 3 MG, BID
     Route: 048
  5. RADIATION THERAPY [Concomitant]
     Dates: start: 20041001

REACTIONS (10)
  - FEELING ABNORMAL [None]
  - GASTROENTERITIS [None]
  - KIDNEY ENLARGEMENT [None]
  - NAUSEA [None]
  - NEPHRECTOMY [None]
  - RADIOTHERAPY [None]
  - RENAL CELL CARCINOMA STAGE UNSPECIFIED [None]
  - RENAL SURGERY [None]
  - RETCHING [None]
  - VIRAL INFECTION [None]
